FAERS Safety Report 9978324 (Version 1)
Quarter: 2014Q1

REPORT INFORMATION
  Report Type: Spontaneous
  Country: GB (occurrence: GB)
  Receive Date: 20140306
  Receipt Date: 20140306
  Transmission Date: 20141002
  Serious: Yes (Other)
  Sender: FDA-Public Use
  Company Number: GB-ELI_LILLY_AND_COMPANY-GB201402007953

PATIENT
  Age: 79 Year
  Sex: Female

DRUGS (13)
  1. HUMULIN 30% REGULAR, 70% NPH [Suspect]
     Indication: DIABETES MELLITUS
     Dosage: 110 U, EACH MORNING
     Route: 065
     Dates: start: 200307
  2. HUMULIN 30% REGULAR, 70% NPH [Suspect]
     Dosage: 55 U, EACH EVENING
     Route: 065
     Dates: start: 200307
  3. ENDOSTATIN [Concomitant]
     Dosage: 20 MG, WEEKLY (1/W)
     Route: 065
  4. FERROUS SULPHATE                   /00023503/ [Concomitant]
     Dosage: 200 MG, QD
  5. LEVOTHYROXINE [Concomitant]
     Dosage: 125 UG, QD
  6. OMEPRAZOLE [Concomitant]
  7. DILTIAZEM [Concomitant]
     Indication: BLOOD PRESSURE INCREASED
     Dosage: 60 MG, TID
  8. ASPIRIN [Concomitant]
     Dosage: 75 DF, UNKNOWN
  9. CO-DYDRAMOL [Concomitant]
  10. METOCLOPRAMIDE [Concomitant]
     Indication: NAUSEA
     Dosage: 10 MG, UNKNOWN
  11. LISINOPRIL [Concomitant]
     Dosage: 20 MG, UNKNOWN
  12. METFORMIN [Concomitant]
     Dosage: 500 DF, TID
  13. AMLODIPINE [Concomitant]
     Dosage: 10 MG, UNKNOWN

REACTIONS (4)
  - Cerebrovascular accident [Unknown]
  - Diabetes mellitus inadequate control [Not Recovered/Not Resolved]
  - Glycosylated haemoglobin increased [Unknown]
  - Memory impairment [Unknown]
